FAERS Safety Report 15918292 (Version 1)
Quarter: 2019Q1

REPORT INFORMATION
  Report Type: Spontaneous
  Country: US (occurrence: US)
  Receive Date: 20190205
  Receipt Date: 20190205
  Transmission Date: 20190417
  Serious: Yes (Hospitalization)
  Sender: FDA-Public Use
  Company Number: US-PERRIGO-19US001523

PATIENT
  Age: 71 Year
  Sex: Male

DRUGS (1)
  1. FLUOCINONIDE. [Suspect]
     Active Substance: FLUOCINONIDE
     Indication: PSORIASIS
     Dosage: UNKNOWN AMOUNT TO LARGE AREA INCLUDING ABDOMEN, BID
     Route: 061

REACTIONS (1)
  - Hyperglycaemia [Recovered/Resolved]
